FAERS Safety Report 8619250-3 (Version None)
Quarter: 2012Q3

REPORT INFORMATION
  Report Type: 
  Country: None (occurrence: None)
  Receive Date: 20120824
  Receipt Date: 20120817
  Transmission Date: 20120928
  Serious: Yes (Hospitalization, Disabling, Other)
  Sender: FDA-Public Use
  Company Number: US-009507513-1103USA00905

PATIENT

DRUGS (12)
  1. FOSAMAX [Suspect]
     Dosage: 35 MG, UNK
     Route: 048
     Dates: start: 20020601
  2. MK-9359 [Concomitant]
     Dosage: 50 MG, QD
  3. MK-9278 [Concomitant]
     Dosage: UNK UNK, QD
  4. FOSAMAX [Suspect]
     Dosage: 70 MG, QW
     Route: 048
     Dates: start: 20030730
  5. FOSAMAX [Suspect]
     Indication: OSTEOPENIA
     Dosage: 70 MG, UNK
     Route: 048
     Dates: start: 20080503, end: 20100301
  6. CENTRUM (MINERALS (UNSPECIFIED) (+) VITAMINS (UNSPECIFIED)) [Concomitant]
  7. PRAVACHOL [Concomitant]
     Dosage: 80 MG, QD
  8. OS-CAL + D [Concomitant]
     Indication: OSTEOPENIA
     Dosage: UNK UNK, BID
     Dates: start: 20090101
  9. FOSAMAX [Suspect]
     Indication: OSTEOPOROSIS
  10. ALENDRONATE SODIUM [Suspect]
     Indication: OSTEOPENIA
     Dosage: 70 MG, UNK
     Route: 048
     Dates: start: 20080908
  11. FOSAMAX [Suspect]
     Indication: OSTEOPOROSIS PROPHYLAXIS
     Dosage: 70 MG, QW
     Route: 048
     Dates: start: 20080201
  12. CITRACAL + D [Concomitant]
     Indication: OSTEOPENIA
     Dosage: UNK UNK, QD
     Dates: start: 20040101

REACTIONS (36)
  - TOOTH INFECTION [None]
  - BURSITIS [None]
  - FATIGUE [None]
  - RHONCHI [None]
  - ATROPHODERMA OF PASINI AND PIERINI [None]
  - HAEMANGIOMA [None]
  - FOOT FRACTURE [None]
  - CORONARY ARTERY DISEASE [None]
  - TINEA PEDIS [None]
  - LENTIGO [None]
  - SKIN FISSURES [None]
  - ROTATOR CUFF SYNDROME [None]
  - SEBORRHOEIC KERATOSIS [None]
  - DIVERTICULITIS [None]
  - DYSPEPSIA [None]
  - LIMB INJURY [None]
  - FACET JOINT SYNDROME [None]
  - LUMBAR SPINAL STENOSIS [None]
  - PSORIATIC ARTHROPATHY [None]
  - BONE CYST [None]
  - SPONDYLOLISTHESIS [None]
  - DIVERTICULUM INTESTINAL [None]
  - SCIATICA [None]
  - BLOOD CALCIUM INCREASED [None]
  - DRY MOUTH [None]
  - FOOT DEFORMITY [None]
  - EXOSTOSIS [None]
  - LIMB RECONSTRUCTIVE SURGERY [None]
  - OSTEOARTHRITIS [None]
  - ACROCHORDON [None]
  - FRACTURE [None]
  - FEMUR FRACTURE [None]
  - OSTEOPOROSIS [None]
  - LOW TURNOVER OSTEOPATHY [None]
  - RIB FRACTURE [None]
  - ACTINIC KERATOSIS [None]
